FAERS Safety Report 12158721 (Version 1)
Quarter: 2016Q1

REPORT INFORMATION
  Report Type: Spontaneous
  Country: US (occurrence: US)
  Receive Date: 20160308
  Receipt Date: 20160308
  Transmission Date: 20160526
  Serious: No
  Sender: FDA-Public Use
  Company Number: US-JNJFOC-20160123995

PATIENT
  Age: 78 Year
  Sex: Female
  Weight: 67.59 kg

DRUGS (1)
  1. TYLENOL EXTRA STRENGTH [Suspect]
     Active Substance: ACETAMINOPHEN
     Indication: HEADACHE
     Dosage: OCCASIONALLY
     Route: 048
     Dates: start: 201509

REACTIONS (2)
  - Blood disorder [Unknown]
  - Incorrect dose administered [Unknown]
